FAERS Safety Report 9714145 (Version 1)
Quarter: 2013Q4

REPORT INFORMATION
  Report Type: Spontaneous
  Country: US (occurrence: US)
  Receive Date: 20131126
  Receipt Date: 20131126
  Transmission Date: 20140711
  Serious: Yes (Hospitalization)
  Sender: FDA-Public Use
  Company Number: US-GILEAD-2008-0019042

PATIENT
  Age: 92 Year
  Sex: Female

DRUGS (8)
  1. LETAIRIS [Suspect]
     Indication: PULMONARY ARTERIAL HYPERTENSION
     Route: 048
     Dates: start: 20080922
  2. COUMADIN [Concomitant]
  3. REVATIO [Concomitant]
  4. LIPITOR [Concomitant]
  5. COD LIVER OIL [Concomitant]
  6. MULTIVITAMIN [Concomitant]
  7. VITAMIN A [Concomitant]
  8. VITAMIN D [Concomitant]

REACTIONS (1)
  - Dyspnoea [Recovered/Resolved with Sequelae]
